FAERS Safety Report 5911758-4 (Version None)
Quarter: 2008Q4

REPORT INFORMATION
  Report Type: 
  Country: None (occurrence: None)
  Receive Date: 20081008
  Receipt Date: 20081002
  Transmission Date: 20090506
  Serious: Yes (Other)
  Sender: FDA-Public Use
  Company Number: US-BAYER-200825269NA

PATIENT

DRUGS (1)
  1. ULTRAVIST 300 [Suspect]
     Route: 065

REACTIONS (2)
  - DYSPNOEA [None]
  - SWELLING FACE [None]
